FAERS Safety Report 11029758 (Version 1)
Quarter: 2015Q2

REPORT INFORMATION
  Report Type: Spontaneous
  Country: US (occurrence: None)
  Receive Date: 20150413
  Receipt Date: 20150413
  Transmission Date: 20150821
  Serious: No
  Sender: FDA-Public Use
  Company Number: None

PATIENT
  Age: 58 Year
  Sex: Female
  Weight: 74.84 kg

DRUGS (11)
  1. CELECOXIB. [Suspect]
     Active Substance: CELECOXIB
     Indication: POLYARTHRITIS
     Dosage: 1 PILL
     Route: 048
     Dates: start: 20141216, end: 20150411
  2. EFFEXOR XR [Concomitant]
     Active Substance: VENLAFAXINE HYDROCHLORIDE
  3. LEVOTHYROXINE [Concomitant]
     Active Substance: LEVOTHYROXINE
  4. CLECOXIB [Concomitant]
  5. VITAMIN C AND D [Concomitant]
  6. ALLEGRA [Concomitant]
     Active Substance: FEXOFENADINE HYDROCHLORIDE
  7. BIOTIN [Concomitant]
     Active Substance: BIOTIN
  8. FISH OIL [Concomitant]
     Active Substance: FISH OIL
  9. SERTRALINE [Concomitant]
     Active Substance: SERTRALINE HYDROCHLORIDE
  10. ALLEGRA [Concomitant]
     Active Substance: FEXOFENADINE HYDROCHLORIDE
  11. CYANOBALMIN [Concomitant]

REACTIONS (6)
  - Arthralgia [None]
  - Product substitution issue [None]
  - Product quality issue [None]
  - Spinal pain [None]
  - Pain [None]
  - Pain in extremity [None]
